FAERS Safety Report 26044697 (Version 1)
Quarter: 2025Q4

REPORT INFORMATION
  Report Type: Spontaneous
  Country: SG (occurrence: SG)
  Receive Date: 20251114
  Receipt Date: 20251114
  Transmission Date: 20260117
  Serious: Yes (Hospitalization)
  Sender: ROCHE
  Company Number: SG-ROCHE-10000434661

PATIENT
  Age: 68 Year
  Sex: Female

DRUGS (2)
  1. HERCEPTIN [Suspect]
     Active Substance: TRASTUZUMAB
     Indication: Breast cancer
     Route: 058
  2. CAPECITABINE [Suspect]
     Active Substance: CAPECITABINE
     Indication: Product used for unknown indication
     Route: 065

REACTIONS (8)
  - Decreased appetite [Unknown]
  - Haemorrhage [Unknown]
  - Red blood cell count decreased [Unknown]
  - Fall [Unknown]
  - Feeling abnormal [Unknown]
  - Pain [Unknown]
  - Syncope [Unknown]
  - Taste disorder [Unknown]
